FAERS Safety Report 4282891-0 (Version None)
Quarter: 2004Q1

REPORT INFORMATION
  Report Type: 
  Country: None (occurrence: None)
  Receive Date: 20040130
  Receipt Date: 20030916
  Transmission Date: 20041129
  Serious: No
  Sender: FDA-Public Use
  Company Number: US-BRISTOL-MYERS SQUIBB COMPANY-12384459

PATIENT
  Age: 50 Year
  Sex: Male
  Weight: 114 kg

DRUGS (7)
  1. SERZONE [Suspect]
     Indication: DEPRESSION
     Dosage: 100 MG ONE TABLET IN THE AM AND TWO TABLETS IN THE PM
     Route: 048
  2. PLAVIX [Concomitant]
     Indication: MYOCARDIAL INFARCTION
     Dosage: IN THE PM
     Route: 048
     Dates: start: 20030912
  3. HYDROCHLOROTHIAZIDE [Concomitant]
  4. XANAX [Concomitant]
  5. NORVASC [Concomitant]
  6. NITROGLYCERIN [Concomitant]
     Dates: start: 20030912
  7. POTASSIUM CHLORIDE [Concomitant]
     Dates: start: 20030912

REACTIONS (1)
  - DRUG INEFFECTIVE [None]
